FAERS Safety Report 10333211 (Version 2)
Quarter: 2015Q1

REPORT INFORMATION
  Report Type: Spontaneous
  Country: US (occurrence: US)
  Receive Date: 20140722
  Receipt Date: 20150213
  Transmission Date: 20150720
  Serious: Yes (Hospitalization, Other)
  Sender: FDA-Public Use
  Company Number: US-ELI_LILLY_AND_COMPANY-US201407005375

PATIENT
  Age: 61 Year
  Sex: Male
  Weight: 99.77 kg

DRUGS (5)
  1. AXIRON [Suspect]
     Active Substance: TESTOSTERONE
     Indication: BLOOD TESTOSTERONE DECREASED
     Dosage: 30 MG, QD
     Route: 065
     Dates: start: 20110815, end: 20120115
  2. CIALIS [Suspect]
     Active Substance: TADALAFIL
     Indication: LIBIDO DECREASED
     Dosage: 5 MG, UNK
     Route: 048
     Dates: start: 20100716, end: 201406
  3. OMEPRAZOLE. [Concomitant]
     Active Substance: OMEPRAZOLE
     Indication: GASTROOESOPHAGEAL REFLUX DISEASE
     Dosage: UNK, UNKNOWN
     Route: 048
     Dates: start: 2000, end: 2014
  4. HYDROCODONE BITARTRATE AND ACETAMINOPHEN [Concomitant]
     Active Substance: ACETAMINOPHEN\HYDROCODONE BITARTRATE
     Indication: PAIN
     Dosage: UNK UNK, PRN
     Route: 048
     Dates: start: 2005, end: 2014
  5. CIALIS [Suspect]
     Active Substance: TADALAFIL
     Indication: ERECTILE DYSFUNCTION

REACTIONS (9)
  - Pulmonary embolism [Unknown]
  - Cardiac failure congestive [Unknown]
  - Hypertension [Unknown]
  - Coronary artery disease [Unknown]
  - Thrombosis [Unknown]
  - Dizziness [Not Recovered/Not Resolved]
  - Cardiomyopathy [Unknown]
  - Hyperlipidaemia [Unknown]
  - Sleep apnoea syndrome [Unknown]

NARRATIVE: CASE EVENT DATE: 20120519
